FAERS Safety Report 24444757 (Version 2)
Quarter: 2024Q4

REPORT INFORMATION
  Report Type: Report from Study
  Country: US (occurrence: US)
  Receive Date: 20241016
  Receipt Date: 20241017
  Transmission Date: 20250115
  Serious: No
  Sender: ROCHE
  Company Number: US-ROCHE-2871500

PATIENT
  Age: 47 Year
  Sex: Female

DRUGS (2)
  1. RITUXAN [Suspect]
     Active Substance: RITUXIMAB
     Indication: Granulomatosis with polyangiitis
     Dosage: 10 ML AND 50 ML VIAL
     Route: 041
  2. RITUXAN [Suspect]
     Active Substance: RITUXIMAB
     Indication: Anti-neutrophil cytoplasmic antibody positive vasculitis
     Dosage: SINGLE-USE VIAL? FREQUENCY TEXT:DAY 0 AND 15 EVERY 6 MONTHS
     Route: 041
     Dates: start: 20220221, end: 20220221

REACTIONS (2)
  - Off label use [Unknown]
  - No adverse event [Unknown]
